FAERS Safety Report 13792654 (Version 1)
Quarter: 2017Q3

REPORT INFORMATION
  Report Type: Spontaneous
  Country: CN (occurrence: CN)
  Receive Date: 20170725
  Receipt Date: 20170725
  Transmission Date: 20171127
  Serious: Yes (Hospitalization, Other)
  Sender: FDA-Public Use
  Company Number: CN-ELI_LILLY_AND_COMPANY-CN201707008200

PATIENT
  Age: 61 Year
  Sex: Female

DRUGS (10)
  1. CLONAZEPAM. [Suspect]
     Active Substance: CLONAZEPAM
     Indication: MEIGE^S SYNDROME
     Dosage: 0.5 MG, EACH EVENING
     Route: 042
  2. OLANZAPINE. [Suspect]
     Active Substance: OLANZAPINE
     Indication: MEIGE^S SYNDROME
     Dosage: UNK UNK, DAILY
     Route: 065
  3. CLONAZEPAM. [Suspect]
     Active Substance: CLONAZEPAM
     Indication: ANXIETY
     Dosage: 10 MG, EACH EVENING
     Route: 065
     Dates: start: 2014
  4. NITRAZEPAM [Suspect]
     Active Substance: NITRAZEPAM
     Indication: PRODUCT USED FOR UNKNOWN INDICATION
     Dosage: UNK, UNKNOWN
     Route: 065
  5. PAROXETINE. [Suspect]
     Active Substance: PAROXETINE
     Indication: MEIGE^S SYNDROME
     Dosage: 30 MG, DAILY
     Route: 065
  6. HALOPERIDOL. [Suspect]
     Active Substance: HALOPERIDOL
     Indication: MEIGE^S SYNDROME
     Dosage: 2 MG, EACH EVENING
     Route: 065
  7. LORAZEPAM. [Suspect]
     Active Substance: LORAZEPAM
     Indication: PRODUCT USED FOR UNKNOWN INDICATION
     Dosage: UNK, UNKNOWN
     Route: 065
  8. FLUPENTIXOL [Suspect]
     Active Substance: FLUPENTIXOL
     Indication: PRODUCT USED FOR UNKNOWN INDICATION
     Dosage: UNK, UNKNOWN
     Route: 065
  9. MELITRACEN [Suspect]
     Active Substance: MELITRACEN
     Indication: PRODUCT USED FOR UNKNOWN INDICATION
     Dosage: UNK, UNKNOWN
     Route: 065
  10. LEXAPRO [Suspect]
     Active Substance: ESCITALOPRAM OXALATE
     Indication: MEIGE^S SYNDROME
     Dosage: 10 MG, DAILY
     Route: 065

REACTIONS (3)
  - Condition aggravated [Recovered/Resolved]
  - Gastrointestinal disorder [Unknown]
  - Meige^s syndrome [Recovered/Resolved]
